FAERS Safety Report 4845347-X (Version None)
Quarter: 2005Q4

REPORT INFORMATION
  Report Type: 
  Country: None (occurrence: None)
  Receive Date: 20051205
  Receipt Date: 20051130
  Transmission Date: 20060501
  Serious: Yes (Hospitalization)
  Sender: FDA-Public Use
  Company Number: CN-GLAXOSMITHKLINE-B0402476A

PATIENT
  Age: 17 Year
  Sex: Female

DRUGS (1)
  1. ALBENDAZOLE [Suspect]
     Indication: INFECTION PARASITIC
     Dosage: 2TAB PER DAY
     Route: 065
     Dates: start: 20051101

REACTIONS (1)
  - LIVER DISORDER [None]
